FAERS Safety Report 8890041 (Version 1)
Quarter: 2012Q4

REPORT INFORMATION
  Report Type: Spontaneous
  Country: US (occurrence: None)
  Receive Date: 20121105
  Receipt Date: 20121105
  Transmission Date: 20130627
  Serious: Yes (Other)
  Sender: FDA-Public Use
  Company Number: None

PATIENT
  Age: 33 Year
  Sex: Male
  Weight: 56.7 kg

DRUGS (5)
  1. CLODERM [Suspect]
     Indication: RASH
     Dosage: Small area of face  variable  top
     Route: 061
     Dates: start: 20120117, end: 20120409
  2. CLODERM [Suspect]
     Indication: CONTACT DERMATITIS
     Dosage: Small area of face  variable  top
     Route: 061
     Dates: start: 20120117, end: 20120409
  3. MOMETASONE FUROATE [Suspect]
     Dosage: Small area of face daily top
     Route: 061
     Dates: start: 20120719, end: 20120930
  4. ELIDEL [Concomitant]
  5. DOXYCYCLINE [Concomitant]

REACTIONS (7)
  - Eczema [None]
  - Insomnia [None]
  - Pruritus [None]
  - Scab [None]
  - Skin burning sensation [None]
  - Skin swelling [None]
  - Wound secretion [None]
